FAERS Safety Report 5628406-3 (Version None)
Quarter: 2008Q1

REPORT INFORMATION
  Report Type: 
  Country: None (occurrence: None)
  Receive Date: 20080215
  Receipt Date: 20080207
  Transmission Date: 20080703
  Serious: Yes (Other)
  Sender: FDA-Public Use
  Company Number: JP-SANOFI-SYNTHELABO-A01200801682

PATIENT
  Age: 55 Year
  Sex: Female

DRUGS (6)
  1. PHENOBAL [Concomitant]
     Dosage: UNK
     Route: 048
  2. ALEVIATIN [Concomitant]
     Dosage: UNK
     Route: 048
  3. DEPAKENE [Concomitant]
     Dosage: UNK
     Route: 048
  4. ELPLAT [Suspect]
     Indication: COLON CANCER
     Dosage: 110MG/BODY
     Route: 041
  5. FLUOROURACIL [Suspect]
     Dosage: BOLUS THEN CONTINUOUS INFUSION UNK
     Route: 042
  6. ISOVORIN [Suspect]
     Dosage: UNK
     Route: 041

REACTIONS (1)
  - BONE MARROW FAILURE [None]
